FAERS Safety Report 24831836 (Version 1)
Quarter: 2025Q1

REPORT INFORMATION
  Report Type: Spontaneous
  Country: US (occurrence: US)
  Receive Date: 20250110
  Receipt Date: 20250110
  Transmission Date: 20250408
  Serious: No
  Sender: PFIZER
  Company Number: US-PFIZER INC-202500004619

PATIENT
  Age: 29 Year
  Sex: Male

DRUGS (7)
  1. PAXLOVID [Suspect]
     Active Substance: NIRMATRELVIR\RITONAVIR
     Indication: Post-acute COVID-19 syndrome
     Route: 048
     Dates: start: 202305, end: 2023
  2. FINASTERIDE [Concomitant]
     Active Substance: FINASTERIDE
  3. BUPROPION [Concomitant]
     Active Substance: BUPROPION
  4. ATENOLOL [Concomitant]
     Active Substance: ATENOLOL
  5. MIDODRINE [Concomitant]
     Active Substance: MIDODRINE
  6. VITAMIN D3 [Concomitant]
     Active Substance: CHOLECALCIFEROL
  7. FAMOTIDINE [Concomitant]
     Active Substance: FAMOTIDINE

REACTIONS (4)
  - Off label use [Unknown]
  - Product use issue [Unknown]
  - Off label use [Unknown]
  - Drug effective for unapproved indication [Unknown]
